FAERS Safety Report 6895139-5 (Version None)
Quarter: 2010Q3

REPORT INFORMATION
  Report Type: 
  Country: None (occurrence: None)
  Receive Date: 20100802
  Receipt Date: 20100728
  Transmission Date: 20110219
  Serious: Yes (Life-Threatening)
  Sender: FDA-Public Use
  Company Number: IT-B.I. PHARMACEUTICALS,INC./RIDGEFIELD-2010-IT-00182IT

PATIENT
  Sex: Male

DRUGS (2)
  1. SPIRIVA [Suspect]
     Indication: ASTHMA
     Dosage: TWO POSOLOGIC UNITS DAILY
     Route: 055
     Dates: start: 20100630, end: 20100702
  2. DIFFUMAL [Concomitant]

REACTIONS (2)
  - PARAESTHESIA [None]
  - RASH GENERALISED [None]
